FAERS Safety Report 13151596 (Version 2)
Quarter: 2017Q1

REPORT INFORMATION
  Report Type: Spontaneous
  Country: JP (occurrence: JP)
  Receive Date: 20170125
  Receipt Date: 20170213
  Transmission Date: 20170428
  Serious: Yes (Other)
  Sender: FDA-Public Use
  Company Number: JP-MYLANLABS-2017M1004147

PATIENT

DRUGS (1)
  1. TRETINOIN. [Suspect]
     Active Substance: TRETINOIN
     Indication: ACUTE PROMYELOCYTIC LEUKAEMIA
     Route: 065

REACTIONS (8)
  - Pharyngeal ulceration [Unknown]
  - Behcet^s syndrome [Unknown]
  - Ileal ulcer [Unknown]
  - Stomatitis [Unknown]
  - Ileal perforation [Unknown]
  - Large intestine perforation [Unknown]
  - Mouth ulceration [Unknown]
  - Acute promyelocytic leukaemia differentiation syndrome [Unknown]
